FAERS Safety Report 7278194-2 (Version None)
Quarter: 2011Q1

REPORT INFORMATION
  Report Type: 
  Country: None (occurrence: None)
  Receive Date: 20110207
  Receipt Date: 20110127
  Transmission Date: 20110831
  Serious: Yes (Hospitalization)
  Sender: FDA-Public Use
  Company Number: B0697502A

PATIENT
  Sex: Male
  Weight: 97.6 kg

DRUGS (1)
  1. MARAVIROC [Suspect]
     Indication: HIV INFECTION

REACTIONS (1)
  - CRYPTOSPORIDIOSIS INFECTION [None]
